FAERS Safety Report 16893914 (Version 7)
Quarter: 2020Q4

REPORT INFORMATION
  Report Type: Report from Study
  Country: CA (occurrence: CA)
  Receive Date: 20191008
  Receipt Date: 20201222
  Transmission Date: 20210113
  Serious: Yes (Hospitalization, Other)
  Sender: FDA-Public Use
  Company Number: CA-JNJFOC-20190938591

PATIENT
  Age: 55 Year
  Sex: Male
  Weight: 83.91 kg

DRUGS (1)
  1. REMICADE [Suspect]
     Active Substance: INFLIXIMAB
     Indication: CROHN^S DISEASE
     Route: 042
     Dates: start: 20111219

REACTIONS (3)
  - Brain neoplasm [Recovering/Resolving]
  - Seizure [Unknown]
  - Abnormal behaviour [Unknown]
